FAERS Safety Report 9807988 (Version 3)
Quarter: 2016Q2

REPORT INFORMATION
  Report Type: Report from Study
  Country: US (occurrence: US)
  Receive Date: 20140110
  Receipt Date: 20160602
  Transmission Date: 20160815
  Serious: Yes (Hospitalization)
  Sender: FDA-Public Use
  Company Number: US-ROCHE-1327045

PATIENT
  Age: 58 Year
  Sex: Female

DRUGS (8)
  1. GENTA [Concomitant]
  2. ZYMAR [Concomitant]
     Active Substance: GATIFLOXACIN
  3. LANTUS [Concomitant]
     Active Substance: INSULIN GLARGINE
     Route: 065
     Dates: start: 20120802
  4. BETADINE [Concomitant]
     Active Substance: POVIDONE-IODINE
     Dosage: INDICATION: PREP TO CONJUNCTIVA AND LIDS
     Route: 065
  5. LUCENTIS [Suspect]
     Active Substance: RANIBIZUMAB
     Indication: RETINAL OEDEMA
     Route: 050
  6. TETRAVISC [Concomitant]
     Active Substance: TETRACAINE HYDROCHLORIDE
  7. AKTEN [Concomitant]
     Active Substance: LIDOCAINE HYDROCHLORIDE
  8. LUCENTIS [Suspect]
     Active Substance: RANIBIZUMAB
     Indication: DIABETIC RETINAL OEDEMA
     Route: 050

REACTIONS (15)
  - Viral infection [Unknown]
  - Vitreous haemorrhage [Unknown]
  - Visual acuity reduced [Unknown]
  - Tooth infection [Unknown]
  - Vision blurred [Unknown]
  - Intraocular pressure increased [Unknown]
  - Kidney infection [Unknown]
  - Cystitis [Unknown]
  - Photopsia [Unknown]
  - Urinary tract infection [Unknown]
  - Blood glucose increased [Unknown]
  - Vitreous floaters [Unknown]
  - Eye haemorrhage [Unknown]
  - Hypertension [Unknown]
  - Cystoid macular oedema [Not Recovered/Not Resolved]

NARRATIVE: CASE EVENT DATE: 2011
